FAERS Safety Report 20729895 (Version 1)
Quarter: 2022Q2

REPORT INFORMATION
  Report Type: Spontaneous
  Country: US (occurrence: None)
  Receive Date: 20220419
  Receipt Date: 20220419
  Transmission Date: 20220721
  Serious: Yes (Hospitalization)
  Sender: FDA-Public Use
  Company Number: None

PATIENT
  Age: 52 Year
  Sex: Female

DRUGS (20)
  1. OPSUMIT [Suspect]
     Active Substance: MACITENTAN
     Indication: Pulmonary hypertension
     Dosage: FREQUENCY : DAILY;?
     Route: 048
     Dates: start: 20190910
  2. SILDENAFIL [Concomitant]
     Active Substance: SILDENAFIL
  3. ALBUTEROL INHL NEB SOLN [Concomitant]
  4. METOCLOPRAMIDE [Concomitant]
  5. ALBUTEROL SULFATE [Concomitant]
     Active Substance: ALBUTEROL SULFATE
  6. STIOLTO RESPIMAT [Concomitant]
  7. FLONASE [Concomitant]
  8. PILOCARPINE [Concomitant]
  9. ATORVASTATIN [Concomitant]
  10. URSODIOL [Concomitant]
  11. GABAPENTIN [Concomitant]
  12. SERTRALINE [Concomitant]
  13. YUVAFEM [Concomitant]
     Active Substance: ESTRADIOL HEMIHYDRATE
  14. HYDROXYCHLOROQUINE [Concomitant]
  15. BUPROPION [Concomitant]
  16. RECLAST [Concomitant]
     Active Substance: ZOLEDRONIC ACID
  17. LIDOCAINE TOP CREAM VITAMIN B-12 [Concomitant]
  18. CALCIUM CARBONATE [Concomitant]
  19. FLAXSEED OIL [Concomitant]
  20. VITAMIN D3 [Concomitant]
     Active Substance: CHOLECALCIFEROL
     Dosage: FREQUENCY : DAILY;?
     Route: 048
     Dates: start: 20190910

REACTIONS (4)
  - Sepsis [None]
  - Nausea [None]
  - Vomiting [None]
  - Diarrhoea [None]

NARRATIVE: CASE EVENT DATE: 20220323
